FAERS Safety Report 8296518-4 (Version None)
Quarter: 2012Q2

REPORT INFORMATION
  Report Type: 
  Country: None (occurrence: None)
  Receive Date: 20120418
  Receipt Date: 20120412
  Transmission Date: 20120825
  Serious: No
  Sender: FDA-Public Use
  Company Number: US-PFIZER INC-2012092067

PATIENT
  Sex: Male
  Weight: 78.912 kg

DRUGS (5)
  1. TAMSULOSIN [Concomitant]
     Dosage: UNK
  2. PEPCID [Concomitant]
     Dosage: 20MG
  3. XALATAN [Suspect]
     Indication: GLAUCOMA
     Dosage: ONE DROP IN EACH EYE ONCE DAILY
     Route: 047
     Dates: start: 20120328
  4. SYNTHROID [Concomitant]
     Dosage: UNK
  5. ACETYLSALICYLIC ACID [Concomitant]
     Dosage: UNK, 1X/DAY

REACTIONS (3)
  - INFLUENZA [None]
  - PHARYNGEAL ERYTHEMA [None]
  - PYREXIA [None]
